FAERS Safety Report 9931167 (Version 2)
Quarter: 2015Q1

REPORT INFORMATION
  Report Type: Report from Study
  Country: US (occurrence: US)
  Receive Date: 20140228
  Receipt Date: 20150130
  Transmission Date: 20150721
  Serious: Yes (Other)
  Sender: FDA-Public Use
  Company Number: US-ROCHE-1355069

PATIENT
  Sex: Male

DRUGS (3)
  1. LUCENTIS [Suspect]
     Active Substance: RANIBIZUMAB
     Indication: RETINAL VEIN OCCLUSION
  2. PRESERVISION AREDS [Concomitant]
     Route: 065
  3. LUCENTIS [Suspect]
     Active Substance: RANIBIZUMAB
     Indication: MACULAR OEDEMA
     Dosage: INJECTIONS IN THE RIGHT EYE
     Route: 050
     Dates: start: 20120917, end: 201310

REACTIONS (7)
  - Drug ineffective [Unknown]
  - Visual acuity reduced [Unknown]
  - Blindness [Not Recovered/Not Resolved]
  - Retinal oedema [Unknown]
  - Eye pain [Recovered/Resolved]
  - Intraocular pressure increased [Unknown]
  - Glaucoma [Unknown]
